FAERS Safety Report 5063732-0 (Version None)
Quarter: 2006Q3

REPORT INFORMATION
  Report Type: 
  Country: None (occurrence: None)
  Receive Date: 20060724
  Receipt Date: 20060714
  Transmission Date: 20061208
  Serious: Yes (Other)
  Sender: FDA-Public Use
  Company Number: 2006086913

PATIENT
  Age: 79 Year
  Sex: Male

DRUGS (1)
  1. POLYSPORIN OINTMENT [Suspect]
     Indication: INFECTION PROPHYLAXIS
     Dosage: UNSPECIFIED ONCE EVERY 4-6 WEEKS, TOPICAL
     Route: 061

REACTIONS (1)
  - APPLICATION SITE INFECTION [None]
